FAERS Safety Report 22722211 (Version 2)
Quarter: 2024Q1

REPORT INFORMATION
  Report Type: Report from Study
  Country: PL (occurrence: PL)
  Receive Date: 20230719
  Receipt Date: 20240118
  Transmission Date: 20240409
  Serious: Yes (Death, Life-Threatening, Hospitalization, Other)
  Sender: FDA-Public Use
  Company Number: PL-TEVA-801285ISR

PATIENT
  Age: 69 Year
  Sex: Female

DRUGS (11)
  1. BENDAMUSTINE [Suspect]
     Active Substance: BENDAMUSTINE
     Indication: Chronic lymphocytic leukaemia
     Dosage: UNK UNK, CYCLICAL
     Route: 065
  2. METHYLPREDNISOLONE [Suspect]
     Active Substance: METHYLPREDNISOLONE
     Indication: Haemolysis
     Dosage: 1000 MILLIGRAM
     Route: 065
  3. MIDAZOLAM [Suspect]
     Active Substance: MIDAZOLAM
     Indication: Sedation
     Dosage: 2 MILLIGRAM, EVERY HOUR (48 MILLIGRAM DAILY; INFUSION)
     Route: 042
  4. AMIKACIN [Concomitant]
     Active Substance: AMIKACIN
     Indication: Antibiotic therapy
     Dosage: UNK
     Route: 065
  5. CEFEPIME [Concomitant]
     Active Substance: CEFEPIME HYDROCHLORIDE
     Indication: Antibiotic therapy
     Dosage: UNK
     Route: 065
  6. DOBUTAMINE [Concomitant]
     Active Substance: DOBUTAMINE HYDROCHLORIDE
     Indication: Product used for unknown indication
     Dosage: INFUSION
     Route: 065
  7. HYDROXYZINE [Concomitant]
     Active Substance: HYDROXYZINE HYDROCHLORIDE
     Indication: Product used for unknown indication
     Dosage: UNK
     Route: 065
  8. MORPHINE [Concomitant]
     Active Substance: MORPHINE
     Indication: Sedation
     Dosage: 1 MILLIGRAM, EVERY HOUR (24 MILLIGRAM DAILY; INFUSION)
     Route: 042
  9. MEROPENEM [Concomitant]
     Active Substance: MEROPENEM
     Indication: Antibiotic therapy
     Dosage: CEFEPIME WAS REPLACED BY MEROPENEM
     Route: 065
  10. NOREPINEPHRINE [Concomitant]
     Active Substance: NOREPINEPHRINE
     Indication: Product used for unknown indication
     Dosage: 0.2 MICROGRAM/KILOGRAM (1 MINTUTE) 288 UG/KG DAILY)
     Route: 065
  11. PREDNISONE [Concomitant]
     Active Substance: PREDNISONE
     Indication: Chronic lymphocytic leukaemia
     Dosage: REGIMEN: CHLORAMBUCIL-PREDNISONE
     Route: 065

REACTIONS (27)
  - Multiple organ dysfunction syndrome [Fatal]
  - Liver injury [Fatal]
  - Disseminated intravascular coagulation [Fatal]
  - Haemolysis [Fatal]
  - Cardiac arrest [Fatal]
  - Renal disorder [Fatal]
  - Autoimmune haemolytic anaemia [Fatal]
  - Drug ineffective [Fatal]
  - Lactic acidosis [Unknown]
  - Jaundice [Unknown]
  - Pyrexia [Unknown]
  - Dyspnoea [Unknown]
  - Tachypnoea [Unknown]
  - Anaemia [Recovering/Resolving]
  - Lymphadenopathy [Unknown]
  - Hypotension [Unknown]
  - Back pain [Unknown]
  - Hyperkalaemia [Unknown]
  - Electrocardiogram ST segment depression [Unknown]
  - Asthenia [Unknown]
  - Hyporesponsive to stimuli [Unknown]
  - Renal injury [Unknown]
  - Chromaturia [Unknown]
  - Liver injury [Unknown]
  - Thrombocytopenia [Unknown]
  - Agitation [Unknown]
  - Confusional state [Unknown]
